FAERS Safety Report 16559805 (Version 1)
Quarter: 2019Q3

REPORT INFORMATION
  Report Type: Spontaneous
  Country: US (occurrence: US)
  Receive Date: 20190711
  Receipt Date: 20190711
  Transmission Date: 20191004
  Serious: No
  Sender: FDA-Public Use
  Company Number: US-PFIZER INC-2019295933

PATIENT
  Age: 67 Year
  Sex: Female
  Weight: 81.65 kg

DRUGS (4)
  1. PROVERA [Suspect]
     Active Substance: MEDROXYPROGESTERONE ACETATE
     Dosage: 2.5 MG, DAILY (HALF TABLET DAILY FOR 12 DAYS IN ONE MONTH) BLUE TABLETS
     Route: 048
     Dates: start: 20190702, end: 20190703
  2. PROVERA [Suspect]
     Active Substance: MEDROXYPROGESTERONE ACETATE
     Dosage: 2.5 MG, DAILY (HALF TABLET DAILY FOR 12 DAYS IN ONE MONTH) WHITE, HEXAGONAL TABLETS
     Route: 048
  3. PROVERA [Suspect]
     Active Substance: MEDROXYPROGESTERONE ACETATE
     Indication: MENSTRUAL DISORDER
     Dosage: 5 MG, UNK (6 DAYS A WEEK IN 1 MONTH)
  4. PROVERA [Suspect]
     Active Substance: MEDROXYPROGESTERONE ACETATE
     Dosage: 2.5 MG, DAILY (HALF TABLET DAILY FOR 12 DAYS IN ONE MONTH) FOR 2.5 YEARS

REACTIONS (3)
  - Off label use [Unknown]
  - Anxiety [Recovered/Resolved]
  - Paraesthesia [Recovered/Resolved]

NARRATIVE: CASE EVENT DATE: 20190702
